FAERS Safety Report 5001328-7 (Version None)
Quarter: 2006Q2

REPORT INFORMATION
  Report Type: 
  Country: None (occurrence: None)
  Receive Date: 20060512
  Receipt Date: 20020730
  Transmission Date: 20061013
  Serious: Yes (Other)
  Sender: FDA-Public Use
  Company Number: US-MERCK-0208USA00669

PATIENT
  Age: 68 Year
  Sex: Female
  Weight: 82 kg

DRUGS (1)
  1. VIOXX [Suspect]
     Indication: ARTHRITIS
     Route: 048
     Dates: end: 20000105

REACTIONS (4)
  - CEREBROVASCULAR ACCIDENT [None]
  - EYE DISORDER [None]
  - HYPERTENSION [None]
  - PRESCRIBED OVERDOSE [None]
